FAERS Safety Report 10064114 (Version 2)
Quarter: 2014Q2

REPORT INFORMATION
  Report Type: Report from Study
  Country: NL (occurrence: NL)
  Receive Date: 20140408
  Receipt Date: 20140422
  Transmission Date: 20141212
  Serious: Yes (Hospitalization, Other)
  Sender: FDA-Public Use
  Company Number: NL-JNJFOC-20140316944

PATIENT
  Age: 75 Year
  Sex: Male

DRUGS (16)
  1. ABIRATERONE ACETATE [Suspect]
     Indication: PROSTATE CANCER
     Dosage: 1DD4
     Route: 048
     Dates: start: 20120301
  2. FENTANYL [Concomitant]
     Route: 065
  3. PCM [Concomitant]
     Dosage: 3DD2
     Route: 065
  4. AVODART [Concomitant]
     Dosage: 1DD1
     Route: 065
  5. ESOMEPRAZOL [Concomitant]
     Dosage: 2DD1
     Route: 065
  6. METOPROLOL [Concomitant]
     Dosage: 1DD1
     Route: 065
  7. RAMIPRIL [Concomitant]
     Dosage: 1DD1
     Route: 065
  8. NIFEDIPINE [Concomitant]
     Dosage: 1DD1
     Route: 065
  9. MCR-50 [Concomitant]
     Dosage: 1DD1
     Route: 065
  10. ASCAL [Concomitant]
     Dosage: 1DD1
     Route: 065
  11. CALCICHEW [Concomitant]
     Dosage: 1DD1
     Route: 065
  12. MOVICOLON [Concomitant]
     Dosage: 1DD1
     Route: 065
  13. SERETIDE [Concomitant]
     Dosage: 50/500 1DD1
     Route: 065
  14. NITROGLYCERIN [Concomitant]
     Route: 065
  15. ATROVENT [Concomitant]
     Route: 065
  16. PREDNISON [Concomitant]
     Dosage: 2DD1, SINCE 4 DAYS
     Route: 065

REACTIONS (16)
  - Rectal haemorrhage [Recovering/Resolving]
  - Epistaxis [Recovering/Resolving]
  - Haemorrhoids [Recovering/Resolving]
  - Oesophagitis [Recovering/Resolving]
  - Gastrointestinal tract adenoma [Recovering/Resolving]
  - Dysplasia [Recovering/Resolving]
  - Thrombocytopenia [Recovering/Resolving]
  - Acute coronary syndrome [Recovering/Resolving]
  - Anaemia [Recovering/Resolving]
  - Myocardial infarction [Recovering/Resolving]
  - Blood bilirubin increased [Recovering/Resolving]
  - Renal impairment [Recovering/Resolving]
  - Platelet disorder [Recovering/Resolving]
  - Hydronephrosis [Recovering/Resolving]
  - Prostate cancer metastatic [Recovering/Resolving]
  - Haemorrhage [Recovering/Resolving]
